FAERS Safety Report 26218281 (Version 1)
Quarter: 2025Q4

REPORT INFORMATION
  Report Type: Spontaneous
  Country: US (occurrence: US)
  Receive Date: 20251231
  Receipt Date: 20251231
  Transmission Date: 20260117
  Serious: Yes (Hospitalization, Other)
  Sender: VELOXIS PHARMACEUTICALS
  Company Number: US-VELOXIS PHARMACEUTICALS, INC.-2025-VEL-04468

PATIENT
  Age: 70 Year
  Sex: Female

DRUGS (4)
  1. ENVARSUS XR [Suspect]
     Active Substance: TACROLIMUS
     Indication: Renal transplant
     Dosage: UNK, Q24H
     Route: 061
     Dates: start: 20250127, end: 20251110
  2. ENVARSUS XR [Suspect]
     Active Substance: TACROLIMUS
     Indication: Immunosuppression
  3. BELATACEPT [Concomitant]
     Active Substance: BELATACEPT
     Indication: Immunosuppression
     Dosage: UNK
  4. MYCOPHENOLIC ACID [Concomitant]
     Active Substance: MYCOPHENOLIC ACID
     Indication: Immunosuppression
     Dosage: UNK

REACTIONS (3)
  - Renal transplant failure [Unknown]
  - Thrombotic microangiopathy [Not Recovered/Not Resolved]
  - Toxicity to various agents [Recovered/Resolved]

NARRATIVE: CASE EVENT DATE: 20250818
